FAERS Safety Report 12822267 (Version 1)
Quarter: 2016Q4

REPORT INFORMATION
  Report Type: Spontaneous
  Country: US (occurrence: US)
  Receive Date: 20161007
  Receipt Date: 20161007
  Transmission Date: 20170207
  Serious: Yes (Hospitalization, Other)
  Sender: FDA-Public Use
  Company Number: US-AMGEN-USASP2016135715

PATIENT
  Age: 59 Year
  Sex: Female
  Weight: 64.4 kg

DRUGS (1)
  1. NEULASTA [Suspect]
     Active Substance: PEGFILGRASTIM
     Indication: PRODUCT USED FOR UNKNOWN INDICATION
     Dosage: 6 MG, QMO
     Route: 058
     Dates: start: 20160103

REACTIONS (11)
  - Neuropathy peripheral [Unknown]
  - Drug dose omission [Unknown]
  - Application site bruise [Unknown]
  - Infection [Unknown]
  - Metastases to spine [Unknown]
  - White blood cell count decreased [Recovered/Resolved]
  - Application site haemorrhage [Recovered/Resolved with Sequelae]
  - Abdominal discomfort [Unknown]
  - Dehydration [Unknown]
  - Pyrexia [Unknown]
  - Metastases to bone [Unknown]

NARRATIVE: CASE EVENT DATE: 2016
